FAERS Safety Report 7118489-6 (Version None)
Quarter: 2010Q4

REPORT INFORMATION
  Report Type: 
  Country: None (occurrence: None)
  Receive Date: 20101123
  Receipt Date: 20101109
  Transmission Date: 20110411
  Serious: Yes (Other)
  Sender: FDA-Public Use
  Company Number: PHHY2010MX76345

PATIENT
  Age: 56 Year
  Sex: Male

DRUGS (1)
  1. EXFORGE HCT [Suspect]
     Indication: HYPERTENSION
     Dosage: 1 DF, QD
     Route: 048
     Dates: start: 20100201

REACTIONS (3)
  - EYE HAEMORRHAGE [None]
  - EYE PAIN [None]
  - HEADACHE [None]
